FAERS Safety Report 6577500-1 (Version None)
Quarter: 2010Q1

REPORT INFORMATION
  Report Type: 
  Country: None (occurrence: None)
  Receive Date: 20100211
  Receipt Date: 20100203
  Transmission Date: 20100710
  Serious: Yes (Hospitalization)
  Sender: FDA-Public Use
  Company Number: JP-NOVOPROD-304044

PATIENT
  Age: 81 Year
  Sex: Male

DRUGS (3)
  1. NOVORAPID CHU PENFILL [Suspect]
     Indication: DIABETES MELLITUS
     Dosage: /SC
     Route: 058
  2. NOVORAPID 30 MIX CHU PENFILL [Suspect]
     Indication: DIABETES MELLITUS
     Dosage: /SC
     Route: 058
  3. LEVEMIR CHU PENFILL [Suspect]
     Indication: DIABETES MELLITUS
     Dosage: /SC
     Route: 058

REACTIONS (8)
  - ANTI-INSULIN ANTIBODY INCREASED [None]
  - AUTOANTIBODY POSITIVE [None]
  - DIABETES MELLITUS INADEQUATE CONTROL [None]
  - HYPERSENSITIVITY [None]
  - INJECTION SITE ERYTHEMA [None]
  - INJECTION SITE PRURITUS [None]
  - INJECTION SITE SWELLING [None]
  - INSULIN RESISTANCE [None]
